FAERS Safety Report 6824493-5 (Version None)
Quarter: 2010Q3

REPORT INFORMATION
  Report Type: 
  Country: None (occurrence: None)
  Receive Date: 20100708
  Receipt Date: 20061031
  Transmission Date: 20110219
  Serious: No
  Sender: FDA-Public Use
  Company Number: US-PFIZER INC-2006134918

PATIENT
  Sex: Female
  Weight: 63.5 kg

DRUGS (1)
  1. CHANTIX [Suspect]
     Indication: SMOKING CESSATION THERAPY
     Dates: start: 20061023

REACTIONS (5)
  - ABNORMAL DREAMS [None]
  - ANGER [None]
  - BRONCHITIS [None]
  - CHEST DISCOMFORT [None]
  - NAUSEA [None]
